FAERS Safety Report 24341148 (Version 2)
Quarter: 2024Q4

REPORT INFORMATION
  Report Type: Spontaneous
  Country: JP (occurrence: JP)
  Receive Date: 20240919
  Receipt Date: 20241014
  Transmission Date: 20250115
  Serious: Yes (Other)
  Sender: NOVARTIS
  Company Number: JP-002147023-NVSJ2024JP010861

PATIENT
  Age: 61 Year
  Sex: Male

DRUGS (1)
  1. TASIGNA [Suspect]
     Active Substance: NILOTINIB
     Indication: Chronic myeloid leukaemia
     Dosage: UNK
     Route: 065
     Dates: start: 2015

REACTIONS (5)
  - Carotid artery stenosis [Unknown]
  - Amaurosis fugax [Unknown]
  - Cerebral artery stenosis [Unknown]
  - Thrombotic cerebral infarction [Unknown]
  - Vertebral artery occlusion [Unknown]
